FAERS Safety Report 24157791 (Version 2)
Quarter: 2024Q3

REPORT INFORMATION
  Report Type: Report from Study
  Country: AU (occurrence: AU)
  Receive Date: 20240731
  Receipt Date: 20240925
  Transmission Date: 20241017
  Serious: Yes (Hospitalization)
  Sender: JOHNSON AND JOHNSON
  Company Number: AU-JNJFOC-20240765108

PATIENT
  Sex: Male
  Weight: 65 kg

DRUGS (1)
  1. REMICADE [Suspect]
     Active Substance: INFLIXIMAB
     Indication: Psoriasis
     Route: 041

REACTIONS (3)
  - Malignant melanoma [Unknown]
  - Respiratory syncytial virus infection [Recovering/Resolving]
  - Off label use [Unknown]
